FAERS Safety Report 19578549 (Version 2)
Quarter: 2021Q4

REPORT INFORMATION
  Report Type: Spontaneous
  Country: US (occurrence: US)
  Receive Date: 20210720
  Receipt Date: 20211110
  Transmission Date: 20220304
  Serious: No
  Sender: FDA-Public Use
  Company Number: US-JNJFOC-20210738136

PATIENT
  Age: 12 Year
  Sex: Male
  Weight: 36.3 kg

DRUGS (3)
  1. STELARA [Suspect]
     Active Substance: USTEKINUMAB
     Indication: Crohn^s disease
     Route: 058
     Dates: start: 20190828
  2. STELARA [Suspect]
     Active Substance: USTEKINUMAB
     Dosage: APPROXIMATE TOTAL ^NUMBER OF DOSES/  INJECTIONS/INFUSIONS PATIENT RECEIVED IS 25
     Route: 058
     Dates: start: 20190406
  3. ERGOCALCIFEROL [Concomitant]
     Active Substance: ERGOCALCIFEROL

REACTIONS (4)
  - Product dose omission issue [Unknown]
  - Product storage error [Unknown]
  - Product use issue [Unknown]
  - Off label use [Unknown]

NARRATIVE: CASE EVENT DATE: 20190828
